FAERS Safety Report 11971458 (Version 1)
Quarter: 2016Q1

REPORT INFORMATION
  Report Type: Spontaneous
  Country: JP (occurrence: JP)
  Receive Date: 20160128
  Receipt Date: 20160128
  Transmission Date: 20160526
  Serious: Yes (Hospitalization)
  Sender: FDA-Public Use
  Company Number: JP-HTU-2016JP011635

PATIENT
  Age: 61 Year
  Sex: Male
  Weight: 61 kg

DRUGS (6)
  1. CARBOPLATIN. [Suspect]
     Active Substance: CARBOPLATIN
     Indication: LUNG ADENOCARCINOMA METASTATIC
     Dosage: 399 MG, QD
     Route: 041
     Dates: start: 20140702, end: 20140702
  2. DECADRON [Suspect]
     Active Substance: DEXAMETHASONE
     Dosage: 12 MG, QD
     Route: 041
     Dates: start: 20140702, end: 20140709
  3. ALOXI [Suspect]
     Active Substance: PALONOSETRON HYDROCHLORIDE
     Dosage: 0.75 MG, QD
     Route: 041
     Dates: start: 20140702, end: 20140702
  4. DECADRON [Suspect]
     Active Substance: DEXAMETHASONE
     Dosage: 8 MG, QD
     Route: 041
     Dates: start: 20140709, end: 20140709
  5. DENOTAS [Suspect]
     Active Substance: CALCIUM CARBONATE\CHOLECALCIFEROL\MAGNESIUM CARBONATE
     Dosage: 2 DF, QD
     Route: 048
     Dates: start: 20140701, end: 20140806
  6. ABRAXANE [Suspect]
     Active Substance: PACLITAXEL
     Indication: LUNG ADENOCARCINOMA METASTATIC
     Dosage: 168.8 MG, QD
     Route: 041
     Dates: start: 20140702, end: 20140709

REACTIONS (1)
  - Interstitial lung disease [Recovering/Resolving]

NARRATIVE: CASE EVENT DATE: 20140802
